FAERS Safety Report 18880075 (Version 1)
Quarter: 2021Q1

REPORT INFORMATION
  Report Type: Other
  Country: US (occurrence: US)
  Receive Date: 20210211
  Receipt Date: 20210211
  Transmission Date: 20210420
  Serious: Yes (Other)
  Sender: FDA-Public Use
  Company Number: US-ROCHE-2570685

PATIENT
  Age: 37 Year
  Sex: Female
  Weight: 59.93 kg

DRUGS (9)
  1. NUVIGIL [Concomitant]
     Active Substance: ARMODAFINIL
     Indication: SOMNOLENCE
     Route: 048
     Dates: start: 2009
  2. ALBUTEROL. [Concomitant]
     Active Substance: ALBUTEROL
     Indication: ASTHMA
     Dosage: 2 PUFFS AS NEEDED COLD WEATHER OR EXERCISE
     Route: 055
     Dates: start: 1987
  3. NUVIGIL [Concomitant]
     Active Substance: ARMODAFINIL
     Indication: FATIGUE
     Dosage: ONGOING: YES
     Route: 048
     Dates: start: 2008
  4. BUPROPION. [Concomitant]
     Active Substance: BUPROPION
     Indication: ANXIETY
     Route: 048
     Dates: start: 2009
  5. OCREVUS [Suspect]
     Active Substance: OCRELIZUMAB
     Route: 042
     Dates: start: 201811
  6. AMPYRA [Concomitant]
     Active Substance: DALFAMPRIDINE
     Dosage: TAKEN ONCE IN THE MORNING AND ONCE IN THE EVENING ;ONGOING: YES
     Route: 048
     Dates: start: 201910
  7. ALLEGRA [Concomitant]
     Active Substance: FEXOFENADINE HYDROCHLORIDE
     Indication: SEASONAL ALLERGY
     Dosage: TAKEN AS NEEDED ;ONGOING: YES
     Route: 048
     Dates: start: 1990
  8. BUSPAR [Concomitant]
     Active Substance: BUSPIRONE HYDROCHLORIDE
     Indication: ANXIETY
     Dosage: TAKES 7.5 MG IN THE MORNING AND 7.5 AT BEDTIME ;ONGOING: YES
     Route: 048
     Dates: start: 2011
  9. OCREVUS [Suspect]
     Active Substance: OCRELIZUMAB
     Indication: RELAPSING-REMITTING MULTIPLE SCLEROSIS
     Dosage: COMPLETED SPLIT DOSE, FUTURE DOSES EVERY 6 MONTHS ;ONGOING: YES
     Route: 042
     Dates: start: 20191108

REACTIONS (8)
  - Eczema [Recovered/Resolved]
  - White blood cell count increased [Recovered/Resolved]
  - Urinary tract infection [Recovered/Resolved]
  - Uterine leiomyoma [Not Recovered/Not Resolved]
  - White blood cell disorder [Unknown]
  - Bruxism [Unknown]
  - Pain [Recovered/Resolved]
  - Uterine infection [Recovered/Resolved]

NARRATIVE: CASE EVENT DATE: 2019
